FAERS Safety Report 4356480-3 (Version None)
Quarter: 2004Q2

REPORT INFORMATION
  Report Type: 
  Country: None (occurrence: None)
  Receive Date: 20040506
  Receipt Date: 20040427
  Transmission Date: 20050107
  Serious: Yes (Hospitalization)
  Sender: FDA-Public Use
  Company Number: 2004UW08569

PATIENT
  Age: 76 Year
  Sex: Male
  Weight: 61.2356 kg

DRUGS (5)
  1. PRILOSEC OTC [Suspect]
     Indication: STOMACH DISCOMFORT
     Dosage: 1 DF QD PO
     Route: 048
     Dates: start: 20031126
  2. PRILOSEC OTC [Suspect]
     Indication: VOMITING
     Dosage: 1 DF QD PO
     Route: 048
     Dates: start: 20031126
  3. LANOXIN [Concomitant]
  4. DIURETIC [Concomitant]
  5. GEMFIBROZIL [Concomitant]

REACTIONS (3)
  - DYSPNOEA [None]
  - FEELING ABNORMAL [None]
  - PLEURAL EFFUSION [None]
